FAERS Safety Report 6661105-8 (Version None)
Quarter: 2010Q1

REPORT INFORMATION
  Report Type: 
  Country: None (occurrence: None)
  Receive Date: 20100331
  Receipt Date: 20100325
  Transmission Date: 20100710
  Serious: Yes (Death)
  Sender: FDA-Public Use
  Company Number: NL-ROCHE-692633

PATIENT
  Sex: Male
  Weight: 73 kg

DRUGS (5)
  1. BEVACIZUMAB [Suspect]
     Indication: ACUTE MYELOID LEUKAEMIA
     Dosage: LAST DOSE PRIOR TO SAE: 25 AUGUST 2009
     Route: 042
     Dates: start: 20090811
  2. DAUNORUBICIN HCL [Suspect]
     Indication: ACUTE MYELOID LEUKAEMIA
     Dosage: LAST DOSE PRIOR TO SAE: 13 AUGUST 2009
     Route: 042
     Dates: start: 20090811
  3. CYTARABINE [Suspect]
     Indication: ACUTE MYELOID LEUKAEMIA
     Dosage: ROUTE REPORTED: CI, LAST DOSE PRIOR TO SAE: 17 AUGUST 2009
     Route: 050
     Dates: start: 20090811
  4. NEUPOGEN [Concomitant]
     Dosage: LAST DOSE PRIOR TO SAE: 10 SEPTEMBER 2009
     Route: 058
     Dates: start: 20090813
  5. FUROSEMIDE [Concomitant]
     Dosage: LAST DOSE PRIOR TO SAE: 02 NOVEMBER 2009
     Route: 048
     Dates: start: 20091021

REACTIONS (1)
  - CARDIAC FAILURE [None]
